FAERS Safety Report 6574115-6 (Version None)
Quarter: 2010Q1

REPORT INFORMATION
  Report Type: 
  Country: None (occurrence: None)
  Receive Date: 20100201
  Receipt Date: 20100113
  Transmission Date: 20100710
  Serious: Yes (Death)
  Sender: FDA-Public Use
  Company Number: 00000178

PATIENT
  Sex: Female

DRUGS (1)
  1. LEVETIRACETAM [Suspect]
     Indication: CONVULSION
     Dosage: 2
     Dates: start: 20091223, end: 20100113

REACTIONS (3)
  - ARTHRALGIA [None]
  - INCONTINENCE [None]
  - MUSCULAR WEAKNESS [None]
